FAERS Safety Report 4494991-0 (Version None)
Quarter: 2004Q4

REPORT INFORMATION
  Report Type: 
  Country: None (occurrence: None)
  Receive Date: 20041108
  Receipt Date: 20041027
  Transmission Date: 20050328
  Serious: Yes (Other)
  Sender: FDA-Public Use
  Company Number: ES-JNJFOC-20040904286

PATIENT
  Age: 50 Year
  Sex: Female
  Weight: 63 kg

DRUGS (3)
  1. REMICADE [Suspect]
     Indication: RHEUMATOID ARTHRITIS
     Dosage: 27 INFUSION IN TOTAL
     Route: 042
  2. METHOTREXATE [Concomitant]
  3. DACORTIN [Concomitant]

REACTIONS (2)
  - DISSEMINATED TUBERCULOSIS [None]
  - PULMONARY TUBERCULOSIS [None]
